FAERS Safety Report 17344330 (Version 1)
Quarter: 2020Q1

REPORT INFORMATION
  Report Type: Spontaneous
  Country: FR (occurrence: FR)
  Receive Date: 20200129
  Receipt Date: 20200129
  Transmission Date: 20200409
  Serious: Yes (Hospitalization, Other)
  Sender: FDA-Public Use
  Company Number: FR-PFIZER INC-2020035943

PATIENT
  Age: 41 Year
  Sex: Female
  Weight: 65 kg

DRUGS (2)
  1. LYRICA [Suspect]
     Active Substance: PREGABALIN
     Indication: SUICIDE ATTEMPT
     Dosage: 700 MG (14 DOSAGE FORMS)
     Route: 048
     Dates: start: 20191126, end: 20191126
  2. OXYNORMORO [Suspect]
     Active Substance: OXYCODONE HYDROCHLORIDE
     Indication: SUICIDE ATTEMPT
     Dosage: 70 MG (14 DOSAGE FORMS)
     Route: 048
     Dates: start: 20191126, end: 20191126

REACTIONS (5)
  - Product use in unapproved indication [Unknown]
  - Intentional overdose [Unknown]
  - Suicide attempt [Unknown]
  - Bradypnoea [Recovered/Resolved]
  - Somnolence [Recovered/Resolved]

NARRATIVE: CASE EVENT DATE: 20191126
